FAERS Safety Report 23992614 (Version 3)
Quarter: 2024Q3

REPORT INFORMATION
  Report Type: Report from Study
  Country: US (occurrence: US)
  Receive Date: 20240620
  Receipt Date: 20240704
  Transmission Date: 20241016
  Serious: Yes (Other)
  Sender: NOVARTIS
  Company Number: US-002147023-NVSC2024US128095

PATIENT
  Age: 63 Year
  Sex: Female
  Weight: 84.4 kg

DRUGS (2)
  1. LEQVIO [Suspect]
     Active Substance: INCLISIRAN SODIUM
     Indication: Abdominal pain
     Dosage: 284 MG (INITIAL DOSE, ANOTHER DOSE AT 3 MONTHS, THEN A DOSE EVERY 6 MONTHS AFTERWARDS)
     Route: 058
     Dates: start: 20240613
  2. LEQVIO [Suspect]
     Active Substance: INCLISIRAN SODIUM
     Indication: Hyperlipidaemia

REACTIONS (3)
  - Abdominal pain [Not Recovered/Not Resolved]
  - Headache [Unknown]
  - Off label use [Unknown]

NARRATIVE: CASE EVENT DATE: 20240613
